FAERS Safety Report 16590754 (Version 1)
Quarter: 2019Q3

REPORT INFORMATION
  Report Type: Spontaneous
  Country: US (occurrence: US)
  Receive Date: 20190605
  Receipt Date: 20190605
  Transmission Date: 20191004
  Serious: No
  Sender: FDA-Public Use
  Company Number: None

PATIENT
  Age: 67 Year
  Sex: Female

DRUGS (2)
  1. LIPITOR [Concomitant]
     Active Substance: ATORVASTATIN CALCIUM
  2. TIGECYCLINE 50MG [Suspect]
     Active Substance: TIGECYCLINE
     Indication: OSTEOMYELITIS
     Dates: start: 20190516, end: 20190529

REACTIONS (4)
  - Dizziness [None]
  - Pruritus [None]
  - Therapy cessation [None]
  - Visual impairment [None]

NARRATIVE: CASE EVENT DATE: 20190527
